FAERS Safety Report 9456935 (Version 2)
Quarter: 2014Q2

REPORT INFORMATION
  Report Type: Spontaneous
  Country: US (occurrence: US)
  Receive Date: 20130814
  Receipt Date: 20140502
  Transmission Date: 20141212
  Serious: Yes (Hospitalization)
  Sender: FDA-Public Use
  Company Number: US-B.I. PHARMACEUTICALS,INC./RIDGEFIELD-2013-BI-24392BP

PATIENT
  Sex: Female
  Weight: 151.9 kg

DRUGS (5)
  1. PRADAXA [Suspect]
     Indication: ATRIAL FIBRILLATION
     Dosage: 300 MG
     Route: 065
     Dates: start: 20110608, end: 20110816
  2. ASPIRIN [Suspect]
     Indication: PRODUCT USED FOR UNKNOWN INDICATION
     Dosage: 325 MG
     Route: 048
     Dates: end: 20110816
  3. MULTAQ [Concomitant]
     Dosage: 800 MG
     Route: 065
     Dates: start: 201107, end: 201108
  4. CEFDINIR [Concomitant]
     Route: 065
  5. AZITHROMYCIN [Concomitant]
     Route: 065

REACTIONS (2)
  - Subdural haemorrhage [Unknown]
  - Coagulopathy [Unknown]
